FAERS Safety Report 15359760 (Version 1)
Quarter: 2018Q3

REPORT INFORMATION
  Report Type: Spontaneous
  Country: GB (occurrence: GB)
  Receive Date: 20180907
  Receipt Date: 20180907
  Transmission Date: 20181010
  Serious: Yes (Other)
  Sender: FDA-Public Use
  Company Number: GB-TEVA-2018-GB-952241

PATIENT
  Age: 43 Year
  Sex: Female
  Weight: 79 kg

DRUGS (8)
  1. FLUCLOXACILLIN [Concomitant]
     Active Substance: FLUCLOXACILLIN
     Dosage: 4 DOSAGE FORMS DAILY;
     Dates: start: 20180531, end: 20180607
  2. FLUCONAZOLE. [Suspect]
     Active Substance: FLUCONAZOLE
     Route: 065
     Dates: start: 20180730
  3. TRIMETHOPRIM. [Concomitant]
     Active Substance: TRIMETHOPRIM
     Dosage: 2 DOSAGE FORMS DAILY;
     Dates: start: 20180719, end: 20180722
  4. CITALOPRAM [Concomitant]
     Active Substance: CITALOPRAM HYDROBROMIDE
     Dosage: 1 DOSAGE FORMS DAILY;
     Dates: start: 20171103
  5. CLOTRIMAZOLE. [Concomitant]
     Active Substance: CLOTRIMAZOLE
     Dosage: APPLY 2?3 TIMES/DAY
     Dates: start: 20180724
  6. PREDNISOLONE. [Concomitant]
     Active Substance: PREDNISOLONE
     Dosage: 40 MILLIGRAM DAILY; FOR FIVE DAYS
     Dates: start: 20180529, end: 20180603
  7. RIGEVIDON [Concomitant]
     Active Substance: ETHINYL ESTRADIOL\LEVONORGESTREL
     Dosage: AS DIRECTED
     Dates: start: 20171103, end: 20180724
  8. BISOPROLOL [Concomitant]
     Active Substance: BISOPROLOL
     Dosage: 1 DOSAGE FORMS DAILY;
     Dates: start: 20171103

REACTIONS (2)
  - Rash erythematous [Recovering/Resolving]
  - Angiodermatitis [Recovering/Resolving]

NARRATIVE: CASE EVENT DATE: 20180815
